FAERS Safety Report 9829916 (Version 1)
Quarter: 2014Q1

REPORT INFORMATION
  Report Type: Spontaneous
  Country: GB (occurrence: GB)
  Receive Date: 20140120
  Receipt Date: 20140120
  Transmission Date: 20141002
  Serious: Yes (Hospitalization)
  Sender: FDA-Public Use
  Company Number: GB-ASTELLAS-2014EU000269

PATIENT
  Sex: Male

DRUGS (1)
  1. XTANDI [Suspect]
     Dosage: UNK
     Route: 065

REACTIONS (1)
  - Rash [Unknown]
